FAERS Safety Report 5375850-8 (Version None)
Quarter: 2007Q3

REPORT INFORMATION
  Report Type: 
  Country: None (occurrence: None)
  Receive Date: 20070702
  Receipt Date: 20070619
  Transmission Date: 20080115
  Serious: Yes (Hospitalization, Disabling)
  Sender: FDA-Public Use
  Company Number: PHBS2007JP06187

PATIENT
  Age: 29 Year
  Sex: Female
  Weight: 48 kg

DRUGS (10)
  1. NEORAL [Suspect]
     Indication: MYASTHENIA GRAVIS
     Dosage: 225 MG/D
     Route: 048
     Dates: start: 20070214, end: 20070304
  2. PROGRAF [Concomitant]
     Indication: MYASTHENIA GRAVIS
     Dosage: 3 MG/DAY
     Route: 048
     Dates: end: 20070213
  3. MESTINON [Concomitant]
     Indication: MYASTHENIA GRAVIS
     Dosage: 240 MG/DAY
     Route: 048
  4. MYTELASE [Concomitant]
     Indication: MYASTHENIA GRAVIS
     Dosage: 40 MG/DAY
     Route: 048
  5. PREDONINE [Concomitant]
     Indication: MYASTHENIA GRAVIS
     Dosage: 15 MG/DAY
     Route: 048
  6. BONALON [Concomitant]
     Indication: OSTEOPOROSIS
     Dosage: 5 MG/DAY
     Route: 048
  7. GASTER D [Concomitant]
     Indication: GASTRIC ULCER
     Dosage: 40 MG/DAY
     Route: 048
  8. PAXIL [Concomitant]
     Indication: PANIC DISORDER
     Dosage: 30 MG/DAY
     Route: 048
  9. NAUZELIN [Concomitant]
     Dosage: 30 MG/DAY
     Route: 048
  10. SERMION [Concomitant]
     Dosage: 15 MG/DAY
     Route: 048
     Dates: start: 20070329

REACTIONS (9)
  - BLOOD PRESSURE INCREASED [None]
  - CEREBRAL INFARCTION [None]
  - DISCOMFORT [None]
  - HEADACHE [None]
  - HEMIPLEGIA [None]
  - MYASTHENIA GRAVIS CRISIS [None]
  - NASOPHARYNGITIS [None]
  - OXYGEN SATURATION DECREASED [None]
  - RESPIRATORY RATE INCREASED [None]
